FAERS Safety Report 15000603 (Version 1)
Quarter: 2018Q2

REPORT INFORMATION
  Report Type: Spontaneous
  Country: US (occurrence: US)
  Receive Date: 20180521
  Receipt Date: 20180521
  Transmission Date: 20180711
  Serious: Yes (Death)
  Sender: FDA-Public Use
  Company Number: None

PATIENT
  Age: 8 Month
  Sex: Male

DRUGS (12)
  1. AYR SALINE [Concomitant]
  2. DIASTAT [Concomitant]
     Active Substance: DIAZEPAM
  3. MONTELUKAST [Concomitant]
     Active Substance: MONTELUKAST SODIUM
  4. TOPAMAX [Concomitant]
     Active Substance: TOPIRAMATE
  5. VIGABATRIN. [Suspect]
     Active Substance: VIGABATRIN
     Indication: EPILEPSY
     Route: 048
     Dates: start: 20180426
  6. KLONOPIN [Concomitant]
     Active Substance: CLONAZEPAM
  7. CLARITHROMYC [Concomitant]
  8. KEPPRA [Concomitant]
     Active Substance: LEVETIRACETAM
  9. POLY-VI-SOL [Concomitant]
     Active Substance: VITAMINS
  10. TOPIRAMATE. [Concomitant]
     Active Substance: TOPIRAMATE
  11. CLONAZEP [Concomitant]
  12. PREDNISOLONE. [Concomitant]
     Active Substance: PREDNISOLONE

REACTIONS (1)
  - Death [None]

NARRATIVE: CASE EVENT DATE: 20180518
